FAERS Safety Report 25432338 (Version 2)
Quarter: 2025Q2

REPORT INFORMATION
  Report Type: Spontaneous
  Country: AU (occurrence: AU)
  Receive Date: 20250613
  Receipt Date: 20250620
  Transmission Date: 20250717
  Serious: Yes (Life-Threatening, Hospitalization, Other)
  Sender: BAXTER
  Company Number: AU-MLMSERVICE-20241126-PI263822-00201-2

PATIENT
  Age: 76 Year
  Sex: Female
  Weight: 81 kg

DRUGS (10)
  1. LIDOCAINE [Suspect]
     Active Substance: LIDOCAINE
     Indication: General anaesthesia
     Route: 065
  2. LIDOCAINE [Suspect]
     Active Substance: LIDOCAINE
     Indication: Nerve block
     Route: 065
  3. SEVOFLURANE [Suspect]
     Active Substance: SEVOFLURANE
     Indication: Anaesthesia
     Route: 065
  4. SEVOFLURANE [Suspect]
     Active Substance: SEVOFLURANE
     Indication: Maintenance of anaesthesia
  5. PROPOFOL [Suspect]
     Active Substance: PROPOFOL
     Indication: General anaesthesia
     Route: 065
  6. ROPIVACAINE [Suspect]
     Active Substance: ROPIVACAINE
     Indication: Nerve block
     Route: 065
  7. POVIDONE-IODINE [Concomitant]
     Active Substance: POVIDONE-IODINE
     Route: 061
  8. OXYGEN [Concomitant]
     Active Substance: OXYGEN
  9. METARAMINOL [Concomitant]
     Active Substance: METARAMINOL
     Indication: Blood pressure systolic
     Route: 065
  10. METARAMINOL [Concomitant]
     Active Substance: METARAMINOL
     Indication: Blood pressure measurement
     Route: 040

REACTIONS (9)
  - Cardio-respiratory arrest [Recovered/Resolved]
  - Bradycardia [Recovered/Resolved]
  - Blood pressure decreased [Recovered/Resolved]
  - Oxygen saturation decreased [Recovered/Resolved]
  - Heart rate decreased [Recovered/Resolved]
  - Respiratory rate decreased [Recovered/Resolved]
  - End-tidal CO2 decreased [Recovered/Resolved]
  - Brain stem syndrome [Recovered/Resolved]
  - Symptom masked [Recovered/Resolved]
